FAERS Safety Report 25952640 (Version 1)
Quarter: 2025Q4

REPORT INFORMATION
  Report Type: Spontaneous
  Country: US (occurrence: None)
  Receive Date: 20251022
  Receipt Date: 20251022
  Transmission Date: 20260118
  Serious: No
  Sender: FDA-CTU
  Company Number: None

PATIENT
  Age: 77 Year
  Sex: Male
  Weight: 78.75 kg

DRUGS (9)
  1. LEQVIO [Suspect]
     Active Substance: INCLISIRAN SODIUM
     Indication: Blood cholesterol increased
  2. OZEMPIC [Concomitant]
     Active Substance: SEMAGLUTIDE
  3. LISINOPRIL [Concomitant]
     Active Substance: LISINOPRIL
  4. GLIPIZIDE [Concomitant]
     Active Substance: GLIPIZIDE
  5. METFORMIN [Concomitant]
     Active Substance: METFORMIN HYDROCHLORIDE
  6. LEVOTHYROXINE [Concomitant]
     Active Substance: LEVOTHYROXINE
  7. GABAPENTIN [Concomitant]
     Active Substance: GABAPENTIN
  8. TOUJEO MAX [Concomitant]
     Active Substance: INSULIN GLARGINE
  9. UNSPECIFIED INGREDIENT [Concomitant]
     Active Substance: UNSPECIFIED INGREDIENT

REACTIONS (19)
  - Injection related reaction [None]
  - Arthralgia [None]
  - Abdominal pain upper [None]
  - Movement disorder [None]
  - Back pain [None]
  - Musculoskeletal stiffness [None]
  - Gait disturbance [None]
  - Apathy [None]
  - Asthenia [None]
  - Apathy [None]
  - Hypoaesthesia [None]
  - Hypoaesthesia [None]
  - Testicular pain [None]
  - Sleep disorder [None]
  - Fatigue [None]
  - Asthenia [None]
  - Muscle spasms [None]
  - Testicular disorder [None]
  - Musculoskeletal stiffness [None]

NARRATIVE: CASE EVENT DATE: 20251013
